FAERS Safety Report 7527322-X (Version None)
Quarter: 2011Q2

REPORT INFORMATION
  Report Type: 
  Country: None (occurrence: None)
  Receive Date: 20110607
  Receipt Date: 20110411
  Transmission Date: 20111010
  Serious: Yes (Hospitalization, Disabling, Other)
  Sender: FDA-Public Use
  Company Number: BR-BAYER-201016271LA

PATIENT
  Age: 45 Year
  Sex: Male

DRUGS (13)
  1. IBUPROFENO [Concomitant]
     Indication: PREMEDICATION
     Dosage: 1 DF, QOD
     Route: 048
     Dates: start: 20070101
  2. BETASERON [Suspect]
     Dosage: 9.6 MIU, QOD
     Route: 058
  3. CLONAZEPAM [Concomitant]
     Indication: INSOMNIA
     Dosage: 1 DF, QD, 2MG
     Route: 048
     Dates: start: 20080101
  4. CARBAMAZEPINE [Concomitant]
     Indication: CENTRAL NERVOUS SYSTEM LESION
  5. AZATIOPRIN [Concomitant]
     Indication: INFECTION PROPHYLAXIS
  6. LAMOTRIGINE [Concomitant]
     Indication: CENTRAL NERVOUS SYSTEM LESION
     Dosage: 1 DF, QD, 30MG
     Route: 048
     Dates: start: 20080101
  7. BETASERON [Suspect]
     Dosage: BETAJECT
     Route: 058
     Dates: start: 20080101
  8. BETASERON [Suspect]
     Route: 058
     Dates: start: 20100708
  9. AZATIOPRIN [Concomitant]
     Indication: BIPOLAR DISORDER
     Dosage: 1 TABLET / DAY - AS USED DOSE: UNK
     Route: 048
     Dates: start: 20070801, end: 20080801
  10. CARBAMAZEPINE [Concomitant]
     Indication: BIPOLAR DISORDER
     Dosage: 4 TABLETS / DAY
     Route: 048
     Dates: start: 20070801, end: 20100501
  11. CARBAMAZEPINE [Concomitant]
     Indication: DEPRESSION
     Dosage: 200MG, 4 DF, QD
     Route: 048
     Dates: start: 20090801
  12. ANTIDEPRESSANTS [Concomitant]
     Indication: BIPOLAR DISORDER
     Dosage: 1 DF, UNK
     Route: 048
     Dates: start: 20080101
  13. BETASERON [Suspect]
     Indication: RELAPSING-REMITTING MULTIPLE SCLEROSIS
     Dosage: BETAJECT
     Route: 058
     Dates: start: 20070302, end: 20091001

REACTIONS (25)
  - MOBILITY DECREASED [None]
  - MOVEMENT DISORDER [None]
  - SYNCOPE [None]
  - MULTIPLE SCLEROSIS RELAPSE [None]
  - CHEST DISCOMFORT [None]
  - MUSCLE ATROPHY [None]
  - ERECTILE DYSFUNCTION [None]
  - NERVOUSNESS [None]
  - UNEVALUABLE EVENT [None]
  - PAIN [None]
  - RENAL COLIC [None]
  - PYREXIA [None]
  - CHILLS [None]
  - BALANCE DISORDER [None]
  - MULTIPLE SCLEROSIS [None]
  - BLINDNESS [None]
  - MOTOR DYSFUNCTION [None]
  - DEPRESSION [None]
  - SEXUAL DYSFUNCTION [None]
  - MALAISE [None]
  - CARDIOMEGALY [None]
  - MUSCLE SPASMS [None]
  - HEADACHE [None]
  - MUSCULAR WEAKNESS [None]
  - DYSPNOEA [None]
